FAERS Safety Report 8417917-3 (Version None)
Quarter: 2012Q2

REPORT INFORMATION
  Report Type: 
  Country: None (occurrence: None)
  Receive Date: 20120601
  Receipt Date: 20120601
  Transmission Date: 20120825
  Serious: Yes (Disabling)
  Sender: FDA-Public Use
  Company Number: None

PATIENT
  Sex: Male
  Weight: 80.7403 kg

DRUGS (3)
  1. AMIODARONE HCL [Suspect]
     Indication: HEART RATE INCREASED
     Dosage: 200MG 2 TIMES DAILY MOUTH
     Route: 048
     Dates: start: 20051001
  2. AMIODARONE HCL [Suspect]
     Indication: HEART RATE INCREASED
     Dosage: 200MG 2 TIMES DAILY MOUTH
     Route: 048
     Dates: start: 20070901
  3. AMIODARONE HCL [Suspect]
     Indication: HEART RATE INCREASED
     Dosage: 200MG 2 TIMES DAILY MOUTH
     Route: 048
     Dates: start: 20070801

REACTIONS (1)
  - PULMONARY FIBROSIS [None]
